FAERS Safety Report 6212170-3 (Version None)
Quarter: 2009Q2

REPORT INFORMATION
  Report Type: 
  Country: None (occurrence: None)
  Receive Date: 20090602
  Receipt Date: 20090521
  Transmission Date: 20091009
  Serious: Yes (Other)
  Sender: FDA-Public Use
  Company Number: US-PFIZER INC-2009178723

PATIENT
  Sex: Female
  Weight: 92.532 kg

DRUGS (21)
  1. CHANTIX [Suspect]
     Indication: SMOKING CESSATION THERAPY
     Dosage: 1 MG, 2X/DAY
     Dates: start: 20090223, end: 20090501
  2. NEURONTIN [Suspect]
     Dosage: UNK
     Dates: start: 20090101
  3. NORCO [Concomitant]
  4. SOMA [Concomitant]
  5. PROAIR HFA [Concomitant]
  6. COREG [Concomitant]
  7. REGLAN [Concomitant]
  8. XANAX [Concomitant]
  9. MOBIC [Concomitant]
  10. TEMAZEPAM [Concomitant]
  11. PHENERGAN ^AVENTIS PHARMA^ [Concomitant]
  12. PROTONIX [Concomitant]
  13. PROZAC [Concomitant]
  14. VITAMIN B-12 [Concomitant]
  15. LOVAZA [Concomitant]
  16. ALL OTHER NON-THERAPEUTIC PRODUCTS [Concomitant]
  17. MULTI-VITAMINS [Concomitant]
  18. NEURONTIN [Concomitant]
  19. PREVACID [Concomitant]
     Dosage: UNK
  20. PLAVIX [Concomitant]
  21. ALEVE [Concomitant]

REACTIONS (9)
  - DRUG INEFFECTIVE [None]
  - HEART RATE INCREASED [None]
  - MEDICATION ERROR [None]
  - MOOD SWINGS [None]
  - MYOCARDIAL INFARCTION [None]
  - PERIPHERAL ARTERIAL OCCLUSIVE DISEASE [None]
  - PERSONALITY DISORDER [None]
  - STENT PLACEMENT [None]
  - SURGERY [None]
